FAERS Safety Report 5159424-X (Version None)
Quarter: 2006Q4

REPORT INFORMATION
  Report Type: 
  Country: None (occurrence: None)
  Receive Date: 20061122
  Receipt Date: 20061122
  Transmission Date: 20070319
  Serious: Yes (Life-Threatening)
  Sender: FDA-Public Use
  Company Number: None

PATIENT
  Age: 63 Year
  Sex: Male
  Weight: 150 kg

DRUGS (17)
  1. FLUDARABINE [Suspect]
     Indication: BONE MARROW TRANSPLANT
     Dosage: 68 MG DAILY X 4 DOSES IV
     Route: 042
     Dates: start: 20061106, end: 20061106
  2. CAMPATH [Suspect]
     Indication: BONE MARROW TRANSPLANT
     Dosage: 20 MG DAILY X 5 DOSES IV
     Route: 042
     Dates: start: 20061105, end: 20061106
  3. LANTUS [Concomitant]
  4. FLUCONAZOLE [Concomitant]
  5. METOPROLOL SUCCINATE [Concomitant]
  6. DILTIAZEM HCL [Concomitant]
  7. NEXIUM [Concomitant]
  8. ALLOPURINOL [Concomitant]
  9. TYLENOL [Concomitant]
  10. KEFLEX [Concomitant]
  11. BENADRYL [Concomitant]
  12. SOLU-MEDROL [Concomitant]
  13. PREDNISONE TAB [Concomitant]
  14. CIPRO [Concomitant]
  15. REGLAN [Concomitant]
  16. VALTREX [Concomitant]
  17. VENLAFAXINE HCL [Concomitant]

REACTIONS (10)
  - AMNESIA [None]
  - COMPUTERISED TOMOGRAM ABNORMAL [None]
  - COUGH [None]
  - DRUG TOXICITY [None]
  - LUNG INFILTRATION [None]
  - MENTAL STATUS CHANGES [None]
  - NERVOUS SYSTEM DISORDER [None]
  - NUCLEAR MAGNETIC RESONANCE IMAGING BRAIN ABNORMAL [None]
  - OXYGEN SATURATION DECREASED [None]
  - RESPIRATORY DISORDER [None]
